FAERS Safety Report 4842346-9 (Version None)
Quarter: 2005Q4

REPORT INFORMATION
  Report Type: 
  Country: None (occurrence: None)
  Receive Date: 20051128
  Receipt Date: 20051123
  Transmission Date: 20060501
  Serious: Yes (Death)
  Sender: FDA-Public Use
  Company Number: 2005-US-01150

PATIENT
  Age: 61 Year
  Sex: Male

DRUGS (1)
  1. CLOZAPINE [Suspect]
     Indication: SCHIZOPHRENIA
     Dosage: 200 MG, QD, ORAL
     Route: 048
     Dates: start: 20001201, end: 20050901

REACTIONS (7)
  - ALCOHOLISM [None]
  - EXPOSURE TO CHEMICAL POLLUTION [None]
  - HEPATIC FAILURE [None]
  - MULTI-ORGAN FAILURE [None]
  - RENAL FAILURE [None]
  - RESPIRATORY FAILURE [None]
  - SMOKER [None]
